FAERS Safety Report 7016292-9 (Version None)
Quarter: 2010Q3

REPORT INFORMATION
  Report Type: 
  Country: None (occurrence: None)
  Receive Date: 20100923
  Receipt Date: 20100908
  Transmission Date: 20110219
  Serious: Yes (Other)
  Sender: FDA-Public Use
  Company Number: CIP10002220

PATIENT
  Age: 58 Year
  Sex: Female

DRUGS (8)
  1. RISEDRONATE SODIUM [Suspect]
     Indication: OSTEOPOROSIS PROPHYLAXIS
     Dosage: 5 MG DAILY, ORAL
     Route: 048
  2. CALCIUM (CALCIUM) [Concomitant]
  3. ERGOCALCIFEROL [Concomitant]
  4. PREDNISONE [Concomitant]
  5. GLUCOCORTICOIDS [Concomitant]
  6. OMEPRAZOLE [Concomitant]
  7. PRAVASTATINE /00880401/ (PRAVASTATIN) [Concomitant]
  8. IBUPROFEN GENERIC (IBUPROFEN LYSINATE) UNKNKOWN [Concomitant]

REACTIONS (4)
  - ARTHRALGIA [None]
  - FEMUR FRACTURE [None]
  - IMPAIRED HEALING [None]
  - PATHOLOGICAL FRACTURE [None]
